FAERS Safety Report 9898375 (Version 2)
Quarter: 2014Q1

REPORT INFORMATION
  Report Type: Spontaneous
  Country: US (occurrence: US)
  Receive Date: 20140214
  Receipt Date: 20140214
  Transmission Date: 20141002
  Serious: Yes (Hospitalization, Other)
  Sender: FDA-Public Use
  Company Number: US-ELI_LILLY_AND_COMPANY-USA0509108645

PATIENT
  Age: 53 Year
  Sex: Female

DRUGS (8)
  1. ALIMTA [Suspect]
     Indication: NON-SMALL CELL LUNG CANCER
     Dosage: 500 MG/M2, UNKNOWN
     Route: 042
     Dates: start: 200506, end: 200508
  2. TARCEVA                                 /USA/ [Concomitant]
     Indication: NON-SMALL CELL LUNG CANCER STAGE IV
  3. OXYCONTIN [Concomitant]
  4. NEURONTIN                               /UNK/ [Concomitant]
  5. RITALIN                                 /UNK/ [Concomitant]
  6. ZOFRAN                                  /GFR/ [Concomitant]
  7. ZOMETA [Concomitant]
  8. MULTIVITAMINS [Concomitant]

REACTIONS (8)
  - Renal failure acute [Recovered/Resolved]
  - Renal tubular acidosis [Recovering/Resolving]
  - Nephrogenic diabetes insipidus [Unknown]
  - Blood electrolytes abnormal [Recovering/Resolving]
  - Hypomagnesaemia [Unknown]
  - Blood potassium increased [Unknown]
  - Hypophosphataemia [Unknown]
  - Pathological fracture [Unknown]
